FAERS Safety Report 20689307 (Version 1)
Quarter: 2022Q2

REPORT INFORMATION
  Report Type: Spontaneous
  Country: RU (occurrence: RU)
  Receive Date: 20220408
  Receipt Date: 20220408
  Transmission Date: 20220721
  Serious: Yes (Hospitalization)
  Sender: FDA-Public Use
  Company Number: RU-BAYER-2022A036883

PATIENT
  Age: 21 Year
  Sex: Female

DRUGS (2)
  1. YAZ [Suspect]
     Active Substance: DROSPIRENONE\ETHINYL ESTRADIOL
     Indication: Acne
     Dosage: UNK
     Route: 048
     Dates: start: 202106
  2. YAZ [Suspect]
     Active Substance: DROSPIRENONE\ETHINYL ESTRADIOL
     Indication: Contraception

REACTIONS (5)
  - Ovulation pain [None]
  - Dermatitis acneiform [None]
  - Ovulation disorder [None]
  - Genital paraesthesia [None]
  - Hypomenorrhoea [None]

NARRATIVE: CASE EVENT DATE: 20211101
